FAERS Safety Report 16111104 (Version 1)
Quarter: 2019Q1

REPORT INFORMATION
  Report Type: Spontaneous
  Country: FR (occurrence: FR)
  Receive Date: 20190325
  Receipt Date: 20190325
  Transmission Date: 20190418
  Serious: Yes (Hospitalization)
  Sender: FDA-Public Use
  Company Number: PHHY2019FR063293

PATIENT
  Age: 45 Year
  Sex: Female

DRUGS (4)
  1. TERCIAN [Suspect]
     Active Substance: CYAMEMAZINE
     Indication: TOXICITY TO VARIOUS AGENTS
     Route: 048
  2. QUETIAPINE. [Suspect]
     Active Substance: QUETIAPINE
     Indication: TOXICITY TO VARIOUS AGENTS
     Dosage: 500 MG, UNK
     Route: 048
  3. QUETIAPINE. [Suspect]
     Active Substance: QUETIAPINE
     Dosage: 3000 MG, UNK
     Route: 048
  4. VENLAFAXINE [Suspect]
     Active Substance: VENLAFAXINE HYDROCHLORIDE
     Indication: TOXICITY TO VARIOUS AGENTS
     Dosage: 10 DF, UNK
     Route: 048

REACTIONS (2)
  - Altered state of consciousness [Recovered/Resolved]
  - Somnolence [Recovered/Resolved]

NARRATIVE: CASE EVENT DATE: 20190113
